FAERS Safety Report 4993410-5 (Version None)
Quarter: 2006Q2

REPORT INFORMATION
  Report Type: 
  Country: None (occurrence: None)
  Receive Date: 20060505
  Receipt Date: 20060426
  Transmission Date: 20061013
  Serious: Yes (Death, Other)
  Sender: FDA-Public Use
  Company Number: PHBS2006CH06252

PATIENT
  Age: 40 Year
  Sex: Male

DRUGS (5)
  1. CYCLOSPORINE [Suspect]
     Indication: STEM CELL TRANSPLANT
     Route: 065
  2. METHOTREXATE [Concomitant]
     Indication: STEM CELL TRANSPLANT
     Route: 065
  3. FLUDARABINE [Concomitant]
     Indication: STEM CELL TRANSPLANT
  4. BUSULFAN [Concomitant]
  5. ATG-FRESENIUS [Concomitant]

REACTIONS (5)
  - APLASIA PURE RED CELL [None]
  - ASPERGILLOSIS [None]
  - CYTOMEGALOVIRUS COLITIS [None]
  - ERYTHROPOIESIS ABNORMAL [None]
  - GRAFT VERSUS HOST DISEASE [None]
